FAERS Safety Report 23687518 (Version 1)
Quarter: 2024Q1

REPORT INFORMATION
  Report Type: Spontaneous
  Country: US (occurrence: US)
  Receive Date: 20240329
  Receipt Date: 20240329
  Transmission Date: 20240409
  Serious: Yes (Hospitalization, Other)
  Sender: FDA-Public Use
  Company Number: US-SANDOZ-SDZ2024US031512

PATIENT
  Age: 59 Year
  Sex: Male

DRUGS (4)
  1. CEFAZOLIN [Suspect]
     Active Substance: CEFAZOLIN
     Indication: Prosthetic valve endocarditis
     Dosage: UNK
     Route: 065
  2. WARFARIN [Suspect]
     Active Substance: WARFARIN
     Indication: Prosthetic valve endocarditis
     Dosage: UNK
     Route: 065
  3. GENTAMICIN [Concomitant]
     Active Substance: GENTAMICIN
     Indication: Prosthetic valve endocarditis
     Dosage: UNK
     Route: 065
  4. RIFAMPIN [Concomitant]
     Active Substance: RIFAMPIN
     Indication: Prosthetic valve endocarditis
     Dosage: UNK
     Route: 065

REACTIONS (1)
  - Haemorrhage intracranial [Unknown]
